FAERS Safety Report 22371609 (Version 1)
Quarter: 2023Q2

REPORT INFORMATION
  Report Type: Spontaneous
  Country: BR (occurrence: BR)
  Receive Date: 20230526
  Receipt Date: 20230526
  Transmission Date: 20230721
  Serious: Yes (Other)
  Sender: FDA-Public Use
  Company Number: BR-ABBOTT-2023A-1363819

PATIENT
  Sex: Male
  Weight: 76 kg

DRUGS (1)
  1. CLARITHROMYCIN [Suspect]
     Active Substance: CLARITHROMYCIN
     Indication: Sinusitis
     Dosage: 1 TABLET A DAY
     Route: 048
     Dates: start: 202305, end: 202305

REACTIONS (3)
  - Dermatitis allergic [Not Recovered/Not Resolved]
  - Rash macular [Not Recovered/Not Resolved]
  - Skin irritation [Not Recovered/Not Resolved]

NARRATIVE: CASE EVENT DATE: 20230501
